FAERS Safety Report 11965482 (Version 2)
Quarter: 2016Q2

REPORT INFORMATION
  Report Type: Report from Study
  Country: US (occurrence: US)
  Receive Date: 20160127
  Receipt Date: 20160421
  Transmission Date: 20160815
  Serious: No
  Sender: FDA-Public Use
  Company Number: US-AMGEN-USASL2016003327

PATIENT
  Age: 74 Year
  Sex: Female
  Weight: 100.68 kg

DRUGS (1)
  1. REPATHA [Suspect]
     Active Substance: EVOLOCUMAB
     Indication: PRODUCT USED FOR UNKNOWN INDICATION
     Dosage: UNK UNK, Q2WK
     Route: 058
     Dates: start: 20160104

REACTIONS (5)
  - Myalgia [Unknown]
  - Pain [Unknown]
  - Therapeutic response unexpected [Unknown]
  - Paranasal sinus hypersecretion [Unknown]
  - Productive cough [Unknown]

NARRATIVE: CASE EVENT DATE: 201601
